FAERS Safety Report 8252575-2 (Version None)
Quarter: 2012Q2

REPORT INFORMATION
  Report Type: 
  Country: None (occurrence: None)
  Receive Date: 20120402
  Receipt Date: 20120323
  Transmission Date: 20120825
  Serious: Yes (Other)
  Sender: FDA-Public Use
  Company Number: US-BAXTER-2012BAX001529

PATIENT
  Sex: 0

DRUGS (13)
  1. CYCLOPHOSPHAMIDE [Suspect]
     Indication: BURKITT'S LYMPHOMA
  2. DOXORUBICIN HCL [Suspect]
     Indication: BURKITT'S LYMPHOMA
  3. DEXAMETHASONE [Suspect]
     Indication: BURKITT'S LYMPHOMA
  4. DEXAMETHASONE [Suspect]
  5. CYCLOPHOSPHAMIDE [Suspect]
  6. RITUXIMAB [Suspect]
  7. METHOTREXATE [Suspect]
  8. VINCRISTINE [Suspect]
     Indication: BURKITT'S LYMPHOMA
  9. DOXORUBICIN HCL [Suspect]
  10. VINCRISTINE [Suspect]
  11. CYTARABINE [Suspect]
     Indication: BURKITT'S LYMPHOMA
     Route: 037
  12. CYTARABINE [Suspect]
  13. METHOTREXATE [Suspect]
     Indication: BURKITT'S LYMPHOMA
     Route: 037

REACTIONS (1)
  - MYELODYSPLASTIC SYNDROME [None]
